FAERS Safety Report 6020699-6 (Version None)
Quarter: 2008Q4

REPORT INFORMATION
  Report Type: 
  Country: None (occurrence: None)
  Receive Date: 20081223
  Receipt Date: 20081223
  Transmission Date: 20090506
  Serious: Yes (Life-Threatening)
  Sender: FDA-Public Use
  Company Number: None

PATIENT

DRUGS (1)
  1. LANTUS [Suspect]
     Dates: start: 20081219, end: 20081219

REACTIONS (7)
  - ABNORMAL BEHAVIOUR [None]
  - BALANCE DISORDER [None]
  - BLOOD GLUCOSE DECREASED [None]
  - CONFUSIONAL STATE [None]
  - EMOTIONAL DISORDER [None]
  - FEELING ABNORMAL [None]
  - MALAISE [None]
